FAERS Safety Report 20795278 (Version 2)
Quarter: 2022Q2

REPORT INFORMATION
  Report Type: Spontaneous
  Country: JP (occurrence: JP)
  Receive Date: 20220506
  Receipt Date: 20220531
  Transmission Date: 20220721
  Serious: Yes (Other)
  Sender: FDA-Public Use
  Company Number: JP-Indivior Limited-INDV-134030-2022

PATIENT

DRUGS (1)
  1. BUPRENORPHINE HYDROCHLORIDE [Suspect]
     Active Substance: BUPRENORPHINE HYDROCHLORIDE
     Indication: Pain
     Dosage: 0.2 MILLIGRAM, UNKNOWN
     Route: 042

REACTIONS (1)
  - Neoplasm malignant [Unknown]
